FAERS Safety Report 4958264-1 (Version None)
Quarter: 2006Q1

REPORT INFORMATION
  Report Type: 
  Country: None (occurrence: None)
  Receive Date: 20060330
  Receipt Date: 20060324
  Transmission Date: 20060701
  Serious: Yes (Death)
  Sender: FDA-Public Use
  Company Number: PHBS2006JP04480

PATIENT
  Sex: Male

DRUGS (1)
  1. GLEEVEC [Suspect]
     Indication: GASTROINTESTINAL STROMAL TUMOUR
     Dosage: 800 MG/DAY
     Route: 048
     Dates: start: 20060101, end: 20060201

REACTIONS (2)
  - DRUG RESISTANCE [None]
  - SUDDEN DEATH [None]
